FAERS Safety Report 20711467 (Version 3)
Quarter: 2023Q4

REPORT INFORMATION
  Report Type: Report from Study
  Country: CA (occurrence: CA)
  Receive Date: 20220414
  Receipt Date: 20231101
  Transmission Date: 20240110
  Serious: Yes (Death, Other)
  Sender: FDA-Public Use
  Company Number: CA-SHIRE-CA202011330

PATIENT
  Age: 73 Year
  Sex: Female

DRUGS (5)
  1. HUMAN IMMUNOGLOBULIN G [Suspect]
     Active Substance: HUMAN IMMUNOGLOBULIN G
     Indication: Secondary immunodeficiency
     Dosage: 20 MILLILITER, 1/WEEK
     Route: 058
     Dates: start: 20181025
  2. HUMAN IMMUNOGLOBULIN G [Suspect]
     Active Substance: HUMAN IMMUNOGLOBULIN G
     Dosage: 8 GRAM. 1/WEEK
     Route: 050
  3. HUMAN IMMUNOGLOBULIN G [Suspect]
     Active Substance: HUMAN IMMUNOGLOBULIN G
     Dosage: 30 MILLILITER, 1/WEEK
     Route: 058
     Dates: start: 202003
  4. HUMAN IMMUNOGLOBULIN G [Suspect]
     Active Substance: HUMAN IMMUNOGLOBULIN G
     Dosage: 8 GRAM, 1/WEEK
     Route: 058
  5. HIZENTRA [Concomitant]
     Active Substance: HUMAN IMMUNOGLOBULIN G
     Indication: Product used for unknown indication
     Dosage: 50 MILLILITER
     Route: 065

REACTIONS (6)
  - Death [Fatal]
  - Pneumonia [Recovered/Resolved]
  - Sinusitis [Recovered/Resolved]
  - Blood immunoglobulin G decreased [Recovering/Resolving]
  - Bronchitis [Recovering/Resolving]
  - Infection [Unknown]

NARRATIVE: CASE EVENT DATE: 20191201
